FAERS Safety Report 4950249-4 (Version None)
Quarter: 2006Q1

REPORT INFORMATION
  Report Type: 
  Country: None (occurrence: None)
  Receive Date: 20060315
  Receipt Date: 20060302
  Transmission Date: 20060701
  Serious: Yes (Other)
  Sender: FDA-Public Use
  Company Number: 2006033047

PATIENT
  Age: 75 Year
  Sex: Female

DRUGS (5)
  1. CELEBREX [Suspect]
     Indication: OSTEOARTHRITIS
     Dosage: 200 MG (200 MG, 1 IN 1 D), ORAL
     Route: 048
     Dates: start: 20050101, end: 20060218
  2. PREDNISONE [Concomitant]
  3. RANITIDINE [Concomitant]
  4. ERYTHROMYCIN [Concomitant]
  5. DIDROCAL (CALCIUM CARBONATE, ETIDRONATE DISODIUM) [Concomitant]

REACTIONS (9)
  - DIARRHOEA [None]
  - DIFFICULTY IN WALKING [None]
  - GASTROINTESTINAL DISORDER [None]
  - LOSS OF CONSCIOUSNESS [None]
  - NAUSEA [None]
  - PAIN IN EXTREMITY [None]
  - RESPIRATORY ARREST [None]
  - STOMACH DISCOMFORT [None]
  - VOMITING [None]
